FAERS Safety Report 13101525 (Version 3)
Quarter: 2017Q1

REPORT INFORMATION
  Report Type: Spontaneous
  Country: US (occurrence: US)
  Receive Date: 20170110
  Receipt Date: 20170216
  Transmission Date: 20170428
  Serious: No
  Sender: FDA-Public Use
  Company Number: PHEH2017US000918

PATIENT
  Age: 77 Year
  Sex: Male

DRUGS (1)
  1. SANDOSTATIN LAR DEPOT [Suspect]
     Active Substance: OCTREOTIDE ACETATE
     Indication: PRODUCT USED FOR UNKNOWN INDICATION
     Dosage: 20 MG, QMO
     Route: 030

REACTIONS (2)
  - Needle issue [Unknown]
  - Syringe issue [Unknown]

NARRATIVE: CASE EVENT DATE: 20170107
